FAERS Safety Report 12247922 (Version 2)
Quarter: 2016Q2

REPORT INFORMATION
  Report Type: Spontaneous
  Country: US (occurrence: US)
  Receive Date: 20160408
  Receipt Date: 20160512
  Transmission Date: 20160815
  Serious: No
  Sender: FDA-Public Use
  Company Number: US-TEVA-629325USA

PATIENT
  Sex: Female

DRUGS (1)
  1. ZECUITY [Suspect]
     Active Substance: SUMATRIPTAN SUCCINATE
     Indication: MIGRAINE
     Dosage: 6.5 MG / 4 HOURS
     Route: 062
     Dates: start: 201601, end: 201601

REACTIONS (4)
  - Application site vesicles [Unknown]
  - Device leakage [Unknown]
  - Application site dermatitis [Unknown]
  - Application site discolouration [Unknown]

NARRATIVE: CASE EVENT DATE: 201601
